FAERS Safety Report 14076176 (Version 1)
Quarter: 2017Q4

REPORT INFORMATION
  Report Type: Spontaneous
  Country: CH (occurrence: CH)
  Receive Date: 20171011
  Receipt Date: 20171011
  Transmission Date: 20180321
  Serious: Yes (Hospitalization)
  Sender: FDA-Public Use
  Company Number: CH-JNJFOC-20171009617

PATIENT
  Age: 81 Year
  Sex: Male
  Weight: 71 kg

DRUGS (11)
  1. FRAGMIN [Concomitant]
     Active Substance: DALTEPARIN SODIUM
     Route: 065
     Dates: start: 20170916, end: 20170916
  2. METFIN [Concomitant]
     Active Substance: METFORMIN HYDROCHLORIDE
     Route: 048
     Dates: end: 20170915
  3. ACIDUM FOLICUM [Concomitant]
     Active Substance: FOLIC ACID
     Route: 065
  4. CANDESARTAN. [Concomitant]
     Active Substance: CANDESARTAN
     Dosage: MAINTENANCE THERAPY, INTERRUPTED 16-19-SEP-2017
     Route: 065
  5. ASPIRIN CARDIO [Interacting]
     Active Substance: ASPIRIN
     Indication: PRODUCT USED FOR UNKNOWN INDICATION
     Route: 048
     Dates: end: 20170915
  6. XARELTO [Suspect]
     Active Substance: RIVAROXABAN
     Indication: PRODUCT USED FOR UNKNOWN INDICATION
     Route: 048
     Dates: start: 20170907, end: 20170915
  7. CRESTOR [Concomitant]
     Active Substance: ROSUVASTATIN CALCIUM
     Route: 048
  8. DAFALGAN [Concomitant]
     Active Substance: ACETAMINOPHEN
     Route: 048
     Dates: start: 20170907
  9. NOVALGIN [Suspect]
     Active Substance: METAMIZOLE SODIUM
     Indication: PRODUCT USED FOR UNKNOWN INDICATION
     Route: 048
     Dates: start: 20170907, end: 20170915
  10. SYMFONA N (GINKGO BILOBA EXTRACT) [Interacting]
     Active Substance: GINKGO
     Indication: PRODUCT USED FOR UNKNOWN INDICATION
     Route: 048
     Dates: end: 20170915
  11. ZYLORIC [Concomitant]
     Active Substance: ALLOPURINOL
     Dosage: INTERRUPTION DUE TO RENAL FAILURE
     Route: 048
     Dates: end: 20170916

REACTIONS (8)
  - Shock haemorrhagic [Recovered/Resolved]
  - Hypotonia [None]
  - Upper gastrointestinal haemorrhage [Recovered/Resolved]
  - Drug interaction [Recovered/Resolved]
  - Renal failure [None]
  - Duodenal ulcer [Recovering/Resolving]
  - Atrial fibrillation [None]
  - Acute myocardial infarction [None]

NARRATIVE: CASE EVENT DATE: 20170907
